FAERS Safety Report 4345759-7 (Version None)
Quarter: 2004Q2

REPORT INFORMATION
  Report Type: 
  Country: None (occurrence: None)
  Receive Date: 20040423
  Receipt Date: 20040409
  Transmission Date: 20050107
  Serious: Yes (Hospitalization)
  Sender: FDA-Public Use
  Company Number: 205549

PATIENT
  Age: 43 Year
  Sex: Female

DRUGS (9)
  1. HERCEPTIN [Suspect]
     Indication: BREAST CANCER
     Dosage: 4 MG/KG,SINGLE , INTRAVENOUS : 2 MG/KG, 1/WEEK, INTRAVENOUS
     Route: 042
  2. DOCETAXEL(DOCETAXEL) [Suspect]
     Indication: BREAST CANCER
     Dosage: 150 MG, Q3W, INTRAVENOUS
     Route: 042
  3. RANITAL (RANITIDINE) [Concomitant]
  4. AUGMENTIN (AMOXICILLIN, CLAVULANATE POTASSIUM) [Concomitant]
  5. CIPROFLOXACIN [Concomitant]
  6. METAMIZOLE SODIUM (DIPYRONE) [Concomitant]
  7. PARALEN (ACETAMINOPHEN) [Concomitant]
  8. WHOLE BLOOD (BLOOD, WHOLE) [Concomitant]
  9. HYDROCORTISONE [Concomitant]

REACTIONS (5)
  - CHILLS [None]
  - HAEMOGLOBIN DECREASED [None]
  - NEUTROPENIA [None]
  - PYREXIA [None]
  - WHITE BLOOD CELL COUNT DECREASED [None]
